FAERS Safety Report 5486433-3 (Version None)
Quarter: 2007Q3

REPORT INFORMATION
  Report Type: 
  Country: None (occurrence: None)
  Receive Date: 20070919
  Receipt Date: 20070711
  Transmission Date: 20080115
  Serious: No
  Sender: FDA-Public Use
  Company Number: 2007RL000316

PATIENT
  Age: 67 Year
  Sex: Male

DRUGS (5)
  1. OMACOR [Suspect]
     Indication: BLOOD TRIGLYCERIDES INCREASED
     Dosage: 2 GM; BID; PO
     Route: 048
     Dates: start: 20070625
  2. TRICOR /00499301/ [Concomitant]
  3. FINASTERIDE [Concomitant]
  4. TERAZOSIN HYDROCHLORIDE [Concomitant]
  5. ASPIRIN [Concomitant]

REACTIONS (1)
  - CONSTIPATION [None]
